FAERS Safety Report 9823211 (Version 1)
Quarter: 2014Q1

REPORT INFORMATION
  Report Type: Spontaneous
  Country: US (occurrence: US)
  Receive Date: 20140116
  Receipt Date: 20140116
  Transmission Date: 20141002
  Serious: Yes (Other)
  Sender: FDA-Public Use
  Company Number: US-NAPPMUNDI-USA-2013-0109543

PATIENT
  Age: 61 Year
  Sex: Male

DRUGS (2)
  1. DILAUDID INJECTION [Suspect]
     Indication: PAIN
     Route: 042
  2. MS CONTIN TABLETS [Suspect]
     Indication: PAIN
     Route: 048

REACTIONS (5)
  - Blood pressure increased [Unknown]
  - Feeling hot [Unknown]
  - Anxiety [Unknown]
  - Respiratory rate decreased [Unknown]
  - Drug ineffective [Unknown]
